FAERS Safety Report 14870951 (Version 1)
Quarter: 2018Q2

REPORT INFORMATION
  Report Type: Spontaneous
  Country: US (occurrence: US)
  Receive Date: 20180423
  Receipt Date: 20180423
  Transmission Date: 20180711
  Serious: No
  Sender: FDA-Public Use
  Company Number: None

PATIENT
  Sex: Female

DRUGS (1)
  1. HUMIRA [Suspect]
     Active Substance: ADALIMUMAB
     Indication: PSORIASIS
     Route: 058
     Dates: start: 20180410

REACTIONS (9)
  - Hyperhidrosis [None]
  - Emotional distress [None]
  - Pruritus [None]
  - Aphasia [None]
  - Impaired quality of life [None]
  - Skin irritation [None]
  - Helplessness [None]
  - Frustration tolerance decreased [None]
  - Pain [None]
